FAERS Safety Report 24840439 (Version 2)
Quarter: 2025Q1

REPORT INFORMATION
  Report Type: Spontaneous
  Country: US (occurrence: US)
  Receive Date: 20250114
  Receipt Date: 20250117
  Transmission Date: 20250409
  Serious: Yes (Hospitalization, Other)
  Sender: ALEXION PHARMACEUTICALS
  Company Number: US-AstraZeneca-CH-00783193AP

PATIENT

DRUGS (2)
  1. BYDUREON BCISE [Suspect]
     Active Substance: EXENATIDE
     Route: 065
  2. FARXIGA [Suspect]
     Active Substance: DAPAGLIFLOZIN PROPANEDIOL

REACTIONS (9)
  - Infection [Unknown]
  - Incorrect dose administered [Unknown]
  - Contusion [Unknown]
  - Drug resistance [Unknown]
  - Haemorrhage [Unknown]
  - Product use issue [Unknown]
  - White blood cell count abnormal [Unknown]
  - Urinary tract infection [Unknown]
  - Myocardial infarction [Unknown]
